FAERS Safety Report 6138398-9 (Version None)
Quarter: 2009Q1

REPORT INFORMATION
  Report Type: 
  Country: None (occurrence: None)
  Receive Date: 20090327
  Receipt Date: 20090316
  Transmission Date: 20090719
  Serious: No
  Sender: FDA-Public Use
  Company Number: 09US000250

PATIENT
  Age: 19 Year
  Sex: Female

DRUGS (1)
  1. IBUPROFEN [Suspect]
     Indication: INTENTIONAL OVERDOSE
     Dosage: 1400 MG, SINGLE, ORAL
     Route: 048
     Dates: start: 20090316, end: 20090316

REACTIONS (1)
  - INTENTIONAL OVERDOSE [None]
